FAERS Safety Report 8780144 (Version 1)
Quarter: 2012Q4

REPORT INFORMATION
  Report Type: Spontaneous
  Country: US (occurrence: None)
  Receive Date: 20120829
  Receipt Date: 20120829
  Transmission Date: 20130627
  Serious: Yes (Other)
  Sender: FDA-Public Use
  Company Number: 2012MA010411

PATIENT
  Age: 77 Year
  Sex: Male

DRUGS (1)
  1. CLONIDINE HYDROCHLORIDE [Suspect]
     Indication: BLOOD PRESSURE HIGH
     Route: 048

REACTIONS (5)
  - Product quality issue [None]
  - Hypotension [None]
  - Lethargy [None]
  - Somnolence [None]
  - Pain in extremity [None]
